FAERS Safety Report 13427605 (Version 1)
Quarter: 2017Q2

REPORT INFORMATION
  Report Type: Spontaneous
  Country: JP (occurrence: JP)
  Receive Date: 20170411
  Receipt Date: 20170411
  Transmission Date: 20170830
  Serious: Yes (Death, Hospitalization, Other)
  Sender: FDA-Public Use
  Company Number: JP-JNJFOC-20170325032

PATIENT
  Age: 78 Year
  Sex: Female

DRUGS (13)
  1. FENTANYL. [Suspect]
     Active Substance: FENTANYL
     Indication: CANCER PAIN
     Dosage: PARTICULARLY AT 25 MCG/HR
     Route: 062
     Dates: end: 20170302
  2. MAGMITT [Concomitant]
     Active Substance: MAGNESIUM OXIDE
     Dosage: AFTER EACH MEAL
     Route: 048
  3. LYRICA [Suspect]
     Active Substance: PREGABALIN
     Indication: NEURALGIA
     Dosage: IN THE MORNING AND??EVENING
     Route: 048
     Dates: start: 20170314, end: 20170321
  4. ESTAZOLAM. [Concomitant]
     Active Substance: ESTAZOLAM
     Dosage: AT BEDTIME
     Route: 048
  5. LYRICA [Suspect]
     Active Substance: PREGABALIN
     Indication: NEURALGIA
     Dosage: IN THE MORNING AND??EVENING
     Route: 048
     Dates: start: 20170322
  6. LOXOPROFEN [Concomitant]
     Active Substance: LOXOPROFEN
     Dosage: AFTER EACH MEAL
     Route: 048
  7. FENTANYL. [Suspect]
     Active Substance: FENTANYL
     Indication: CANCER PAIN
     Dosage: INCREASED BY HALF THE DOSE (12.5 MCG/HR PER DAY).
     Route: 062
     Dates: start: 20170303
  8. OXINORM [Suspect]
     Active Substance: OXYCODONE HYDROCHLORIDE
     Indication: CANCER PAIN
     Route: 048
     Dates: start: 20170301, end: 20170302
  9. MIRTAZAPINE. [Concomitant]
     Active Substance: MIRTAZAPINE
     Dosage: AT BEDTIME
     Route: 048
  10. BROTIZOLAM [Concomitant]
     Active Substance: BROTIZOLAM
     Dosage: AT BEDTIME
     Route: 048
  11. OXINORM [Suspect]
     Active Substance: OXYCODONE HYDROCHLORIDE
     Indication: CANCER PAIN
     Route: 048
     Dates: start: 20170309, end: 20170403
  12. OXINORM [Suspect]
     Active Substance: OXYCODONE HYDROCHLORIDE
     Indication: CANCER PAIN
     Route: 048
     Dates: start: 20170307, end: 20170308
  13. OXINORM [Suspect]
     Active Substance: OXYCODONE HYDROCHLORIDE
     Indication: CANCER PAIN
     Route: 048
     Dates: start: 20170303, end: 20170306

REACTIONS (4)
  - Hospitalisation [Unknown]
  - Dysuria [Recovering/Resolving]
  - Haemorrhage [Unknown]
  - Thyroid cancer [Fatal]

NARRATIVE: CASE EVENT DATE: 20161105
